FAERS Safety Report 4308593-X (Version None)
Quarter: 2004Q1

REPORT INFORMATION
  Report Type: 
  Country: None (occurrence: None)
  Receive Date: 20040226
  Receipt Date: 20030328
  Transmission Date: 20041129
  Serious: Yes (Hospitalization)
  Sender: FDA-Public Use
  Company Number: 2003153687US

PATIENT
  Sex: Female

DRUGS (1)
  1. CELEBREX [Suspect]
     Indication: ARTHRITIS
     Dosage: 200 MG, SINGLE, ORAL
     Route: 048
     Dates: start: 20030307, end: 20030307

REACTIONS (1)
  - ANAPHYLACTIC SHOCK [None]
